FAERS Safety Report 22227973 (Version 1)
Quarter: 2023Q2

REPORT INFORMATION
  Report Type: Report from Study
  Country: CA (occurrence: CA)
  Receive Date: 20230419
  Receipt Date: 20230419
  Transmission Date: 20230722
  Serious: Yes (Other)
  Sender: FDA-Public Use
  Company Number: CA-GILEAD-2023-0624745

PATIENT
  Sex: Female

DRUGS (1)
  1. AZTREONAM LYSINE [Suspect]
     Active Substance: AZTREONAM LYSINE
     Indication: Cystic fibrosis
     Dosage: CAYSTON 1 VIAL THREE TIMES DAILY FOR 28 DAYS THEN OFF FOR 28 DAYS
     Route: 065

REACTIONS (1)
  - Uterine polyp [Unknown]
